FAERS Safety Report 23919604 (Version 1)
Quarter: 2024Q2

REPORT INFORMATION
  Report Type: Spontaneous
  Country: CN (occurrence: CN)
  Receive Date: 20240530
  Receipt Date: 20240530
  Transmission Date: 20240716
  Serious: Yes (Hospitalization, Other)
  Sender: FDA-Public Use
  Company Number: CN-BAYER-2024A077335

PATIENT
  Age: 75 Year
  Sex: Male
  Weight: 41 kg

DRUGS (1)
  1. STIVARGA [Suspect]
     Active Substance: REGORAFENIB\REGORAFENIB MONOHYDRATE
     Indication: Hepatocellular carcinoma
     Dosage: 80 MG, QD
     Route: 048
     Dates: start: 20240505, end: 20240518

REACTIONS (12)
  - Thrombocytopenia [Recovering/Resolving]
  - Thrombocytopenic purpura [Recovering/Resolving]
  - Leukopenia [Recovering/Resolving]
  - Myelosuppression [Recovering/Resolving]
  - Chills [None]
  - Pyrexia [Recovering/Resolving]
  - Diarrhoea [None]
  - Asthenia [None]
  - Gastroenteritis [None]
  - Fibrin D dimer increased [None]
  - Fibrin degradation products increased [None]
  - Off label use [None]

NARRATIVE: CASE EVENT DATE: 20240505
